FAERS Safety Report 7348044-4 (Version None)
Quarter: 2011Q1

REPORT INFORMATION
  Report Type: 
  Country: None (occurrence: None)
  Receive Date: 20110311
  Receipt Date: 20110302
  Transmission Date: 20110831
  Serious: Yes (Hospitalization)
  Sender: FDA-Public Use
  Company Number: CA-JNJFOC-20110302151

PATIENT
  Age: 47 Year
  Sex: Female
  Weight: 68.9 kg

DRUGS (13)
  1. FOLIC ACID [Concomitant]
     Indication: PROPHYLAXIS
     Dosage: STARTED MORE THAN 10 YEARS AGO
     Route: 048
  2. CYCLOSPORINE [Suspect]
     Indication: RHEUMATOID ARTHRITIS
     Route: 048
  3. MORPHINE SULFATE [Concomitant]
     Indication: RHEUMATOID ARTHRITIS
     Dosage: STARTED MORE THAN 10 YEARS AGO
     Route: 048
  4. LEUCOVORIN CALCIUM [Concomitant]
     Indication: PROPHYLAXIS
     Route: 048
  5. AMITRIPTYLINE HCL [Concomitant]
     Indication: FIBROMYALGIA
     Route: 048
  6. PARIET [Concomitant]
     Indication: ABDOMINAL DISCOMFORT
     Route: 048
  7. TYLENOL W/ CODEINE [Concomitant]
     Indication: RHEUMATOID ARTHRITIS
     Dosage: STARTED MORE THAN 10 YEARS AGO
     Route: 048
  8. TYLENOL W/ CODEINE [Concomitant]
     Indication: FIBROMYALGIA
     Dosage: STARTED MORE THAN 10 YEARS AGO
     Route: 048
  9. MORPHINE SULFATE [Concomitant]
     Indication: FIBROMYALGIA
     Dosage: STARTED MORE THAN 10 YEARS AGO
     Route: 048
  10. VITAMIN D [Concomitant]
     Indication: OSTEOPOROSIS PROPHYLAXIS
     Route: 048
  11. REMICADE [Suspect]
     Route: 042
  12. REMICADE [Suspect]
     Indication: RHEUMATOID ARTHRITIS
     Route: 042
  13. METHOTREXATE [Suspect]
     Indication: RHEUMATOID ARTHRITIS
     Dosage: STARTED MORE THAN 10 YEARS AGO
     Route: 058

REACTIONS (2)
  - BRONCHITIS VIRAL [None]
  - HEMIPARESIS [None]
